FAERS Safety Report 15417843 (Version 1)
Quarter: 2018Q3

REPORT INFORMATION
  Report Type: Spontaneous
  Country: TR (occurrence: TR)
  Receive Date: 20180924
  Receipt Date: 20180924
  Transmission Date: 20181010
  Serious: Yes (Other)
  Sender: FDA-Public Use
  Company Number: PHHY2018TR104883

PATIENT
  Age: 54 Year
  Sex: Male

DRUGS (1)
  1. VOLTAREN [Suspect]
     Active Substance: DICLOFENAC SODIUM
     Indication: MYALGIA
     Dosage: 75 MG, (75 MG/3 ML)
     Route: 030

REACTIONS (6)
  - Syncope [Unknown]
  - Kounis syndrome [Unknown]
  - Anaphylactic shock [Unknown]
  - Oedema [Unknown]
  - Hypokinesia [Unknown]
  - Urticaria [Unknown]
